FAERS Safety Report 4335737-6 (Version None)
Quarter: 2004Q2

REPORT INFORMATION
  Report Type: 
  Country: None (occurrence: None)
  Receive Date: 20040409
  Receipt Date: 20040308
  Transmission Date: 20050107
  Serious: Yes (Hospitalization)
  Sender: FDA-Public Use
  Company Number: PHBS2004ES03187

PATIENT
  Age: 43 Year
  Sex: Male

DRUGS (2)
  1. GLEEVEC [Suspect]
     Indication: CHRONIC MYELOID LEUKAEMIA
     Route: 065
     Dates: start: 20020101
  2. BETA BLOCKING AGENTS [Suspect]

REACTIONS (6)
  - ARRHYTHMIA [None]
  - DIZZINESS [None]
  - PALPITATIONS [None]
  - SUPRAVENTRICULAR TACHYCARDIA [None]
  - VENTRICULAR DYSKINESIA [None]
  - VENTRICULAR HYPOKINESIA [None]
